FAERS Safety Report 4615800-2 (Version None)
Quarter: 2005Q2

REPORT INFORMATION
  Report Type: 
  Country: None (occurrence: None)
  Receive Date: 20050304
  Receipt Date: 20040823
  Transmission Date: 20051028
  Serious: Yes (Hospitalization)
  Sender: FDA-Public Use
  Company Number: F(LIT)13/1104

PATIENT
  Age: 66 Year
  Sex: Female

DRUGS (8)
  1. OMEPRAZOLE [Suspect]
     Indication: GASTROOESOPHAGEAL REFLUX DISEASE
     Dosage: 20 MG DAILY ORAL
     Route: 048
  2. DOXAZOSIN [Concomitant]
  3. BENDROFLUAZIDE [Concomitant]
  4. METOPROLOL TARTRATE [Concomitant]
  5. QUININE SULPHATE [Concomitant]
  6. DIPHENOXYLATE HYDROCHLORIDE [Concomitant]
  7. ATROPINE SULFATE [Concomitant]
  8. PARACETAMOL [Concomitant]

REACTIONS (1)
  - NEPHRITIS INTERSTITIAL [None]
